FAERS Safety Report 5605578-8 (Version None)
Quarter: 2008Q1

REPORT INFORMATION
  Report Type: 
  Country: None (occurrence: None)
  Receive Date: 20080124
  Receipt Date: 20080110
  Transmission Date: 20080703
  Serious: Yes (Hospitalization)
  Sender: FDA-Public Use
  Company Number: S07-GER-05786-01

PATIENT
  Age: 86 Year
  Sex: Male

DRUGS (2)
  1. ESCITALOPRAM [Suspect]
     Indication: MAJOR DEPRESSION
     Dosage: 10 MG QD PO
     Route: 048
     Dates: start: 20070915, end: 20071015
  2. ESCITALOPRAM [Suspect]
     Indication: MAJOR DEPRESSION
     Dosage: 20 MG QD PO
     Route: 048
     Dates: start: 20071015, end: 20071022

REACTIONS (2)
  - CARDIOVASCULAR DISORDER [None]
  - HYPONATRAEMIA [None]
